FAERS Safety Report 6810831-6 (Version None)
Quarter: 2010Q2

REPORT INFORMATION
  Report Type: 
  Country: None (occurrence: None)
  Receive Date: 20100630
  Receipt Date: 20080410
  Transmission Date: 20101027
  Serious: No
  Sender: FDA-Public Use
  Company Number: US-PFIZER INC-2008026952

PATIENT
  Age: 57 Year
  Sex: Female
  Weight: 77.272 kg

DRUGS (1)
  1. ESTRING [Suspect]
     Indication: INADEQUATE LUBRICATION
     Dates: start: 20080228, end: 20080229

REACTIONS (1)
  - APPLICATION SITE DISCOMFORT [None]
